FAERS Safety Report 10678099 (Version 1)
Quarter: 2014Q4

REPORT INFORMATION
  Report Type: Spontaneous
  Country: JP (occurrence: JP)
  Receive Date: 20141229
  Receipt Date: 20141229
  Transmission Date: 20150529
  Serious: Yes (Other)
  Sender: FDA-Public Use
  Company Number: JP-CIPLA LTD.-2014JP02801

PATIENT

DRUGS (5)
  1. DOXORUBICIN HYDROCHLORIDE. [Suspect]
     Active Substance: DOXORUBICIN HYDROCHLORIDE
     Indication: ENDOMETRIAL CANCER RECURRENT
     Dosage: 45 MG/M2 IN 50 ML SALINE, OVER 30 MIN ON DAY 1
  2. CISPLATIN. [Suspect]
     Active Substance: CISPLATIN
     Indication: ENDOMETRIAL CANCER RECURRENT
     Dosage: 50 MG/M2 IN 500 ML SALINE, OVER 2 HOURS ON DAY 1
  3. GRANISETRON [Suspect]
     Active Substance: GRANISETRON
     Dosage: 500/MM3 ON DAY 3 OR 8
     Route: 058
  4. GRANISETRON [Suspect]
     Active Substance: GRANISETRON
     Indication: ENDOMETRIAL CANCER RECURRENT
     Dosage: 75 MG, DAILY FOR 10 DAYS
     Route: 058
  5. PACLITAXEL. [Suspect]
     Active Substance: PACLITAXEL
     Indication: ENDOMETRIAL CANCER RECURRENT
     Dosage: 160 MG/M2 IN 500 ML SALINE, OVER 3 HOURS ON DAY 2

REACTIONS (1)
  - Large intestinal obstruction [Unknown]
